FAERS Safety Report 5389241-7 (Version None)
Quarter: 2007Q3

REPORT INFORMATION
  Report Type: 
  Country: None (occurrence: None)
  Receive Date: 20070717
  Receipt Date: 20070711
  Transmission Date: 20080115
  Serious: Yes (Other)
  Sender: FDA-Public Use
  Company Number: A0663357A

PATIENT
  Age: 76 Year
  Sex: Female

DRUGS (5)
  1. VERAMYST [Suspect]
     Indication: RHINITIS ALLERGIC
     Dosage: 2SPR PER DAY
     Route: 045
     Dates: start: 20070620, end: 20070629
  2. ALTACE [Concomitant]
  3. LEVOTHYROXINE SODIUM [Concomitant]
  4. LIPITOR [Concomitant]
  5. METOPROLOL SUCCINATE [Concomitant]

REACTIONS (2)
  - RASH PRURITIC [None]
  - SKIN LESION [None]
